FAERS Safety Report 20772214 (Version 1)
Quarter: 2022Q2

REPORT INFORMATION
  Report Type: Spontaneous
  Country: None (occurrence: US)
  Receive Date: 20220502
  Receipt Date: 20220502
  Transmission Date: 20220721
  Serious: No
  Sender: FDA-Public Use
  Company Number: US-Ajanta Pharma USA Inc.-2128358

PATIENT
  Age: 58 Year
  Sex: Male
  Weight: 102.73 kg

DRUGS (4)
  1. TADALAFIL [Suspect]
     Active Substance: TADALAFIL
     Indication: Prostatomegaly
  2. TEGRETOL [Concomitant]
     Active Substance: CARBAMAZEPINE
  3. TESTOSTERONE [Concomitant]
     Active Substance: TESTOSTERONE
  4. CLONAZEPAM [Concomitant]
     Active Substance: CLONAZEPAM

REACTIONS (3)
  - Therapeutic product effect decreased [Recovering/Resolving]
  - Nocturia [Recovering/Resolving]
  - Urinary retention [Recovering/Resolving]
